FAERS Safety Report 8571041-8 (Version None)
Quarter: 2012Q3

REPORT INFORMATION
  Report Type: 
  Country: None (occurrence: None)
  Receive Date: 20120730
  Receipt Date: 20120730
  Transmission Date: 20120928
  Serious: No
  Sender: FDA-Public Use
  Company Number: None

PATIENT
  Sex: Female
  Weight: 11.7935 kg

DRUGS (1)
  1. AMOXICILLIN AND CLAVULANATE POTASSIUM [Suspect]
     Indication: EAR INFECTION
     Dosage: 4.2 ML EVERY 12 HOURS PO
     Route: 048
     Dates: start: 20120721, end: 20120723

REACTIONS (10)
  - IRRITABILITY [None]
  - PERSONALITY CHANGE [None]
  - DRUG EFFECT INCREASED [None]
  - EMOTIONAL DISORDER [None]
  - RASH [None]
  - MOOD SWINGS [None]
  - PSYCHOMOTOR HYPERACTIVITY [None]
  - ABNORMAL BEHAVIOUR [None]
  - AGGRESSION [None]
  - INSOMNIA [None]
